FAERS Safety Report 5005998-9 (Version None)
Quarter: 2006Q2

REPORT INFORMATION
  Report Type: 
  Country: None (occurrence: None)
  Receive Date: 20060517
  Receipt Date: 20060517
  Transmission Date: 20061013
  Serious: Yes (Life-Threatening, Hospitalization)
  Sender: FDA-Public Use
  Company Number: None

PATIENT
  Age: 71 Year
  Sex: Male
  Weight: 80.7403 kg

DRUGS (1)
  1. BENZOCAINE  -HURRICAINE-    20%      BEUTLICH [Suspect]
     Indication: ECHOCARDIOGRAM
     Dosage: OROPHARINGE
     Route: 049
     Dates: start: 20051223, end: 20051223

REACTIONS (1)
  - METHAEMOGLOBINAEMIA [None]
